FAERS Safety Report 6058146-0 (Version None)
Quarter: 2009Q1

REPORT INFORMATION
  Report Type: 
  Country: None (occurrence: None)
  Receive Date: 20090127
  Receipt Date: 20090113
  Transmission Date: 20090719
  Serious: Yes (Death, Hospitalization)
  Sender: FDA-Public Use
  Company Number: 2006001568

PATIENT
  Age: 65 Year
  Sex: Male

DRUGS (5)
  1. ERLOTINIB (ERLOTINIB HCI) (TABLET) (ERLOTINIB HCI) [Suspect]
     Indication: NON-SMALL CELL LUNG CANCER
     Dosage: 150 MG (QD), ORAL
     Route: 048
     Dates: start: 20060622, end: 20060723
  2. NYSTATIN [Concomitant]
  3. CITALOPRAM HYDROBROMIDE [Concomitant]
  4. LORAZEPAM [Concomitant]
  5. OXYCODONE HCL [Concomitant]

REACTIONS (9)
  - ANAEMIA [None]
  - DYSPNOEA [None]
  - FLUID INTAKE REDUCED [None]
  - HYPOXIA [None]
  - LETHARGY [None]
  - MALIGNANT NEOPLASM PROGRESSION [None]
  - MOBILITY DECREASED [None]
  - PLEURAL EFFUSION [None]
  - PNEUMONIA [None]
